FAERS Safety Report 13803471 (Version 3)
Quarter: 2017Q4

REPORT INFORMATION
  Report Type: Spontaneous
  Country: US (occurrence: US)
  Receive Date: 20170728
  Receipt Date: 20171208
  Transmission Date: 20180320
  Serious: Yes (Death, Hospitalization, Other)
  Sender: FDA-Public Use
  Company Number: PHEH2017US022999

PATIENT
  Sex: Male

DRUGS (2)
  1. LENVIMA [Suspect]
     Active Substance: LENVATINIB
     Indication: RENAL NEOPLASM
     Dosage: 10 MG, QD
     Route: 048
  2. AFINITOR [Suspect]
     Active Substance: EVEROLIMUS
     Indication: RENAL NEOPLASM
     Route: 048
     Dates: start: 20170320

REACTIONS (20)
  - Back pain [Unknown]
  - Pain in extremity [Unknown]
  - Dermal cyst [Unknown]
  - Death [Fatal]
  - Localised infection [Unknown]
  - Mental impairment [Unknown]
  - Chills [Unknown]
  - Bacterial disease carrier [Unknown]
  - Malignant neoplasm progression [Unknown]
  - Pallor [Unknown]
  - Pleural effusion [Unknown]
  - Fatigue [Unknown]
  - Wound secretion [Unknown]
  - Dizziness postural [Recovering/Resolving]
  - Depression [Unknown]
  - Amnesia [Unknown]
  - Pyrexia [Unknown]
  - Renal neoplasm [Unknown]
  - Cellulitis [Unknown]
  - Anaemia [Unknown]
